FAERS Safety Report 9506068 (Version 1)
Quarter: 2013Q1

REPORT INFORMATION
  Report Type: Spontaneous
  Country: US (occurrence: None)
  Receive Date: 20130305
  Receipt Date: 20130305
  Transmission Date: 20140127
  Serious: Yes (Hospitalization)
  Sender: FDA-Public Use
  Company Number: 163-21880-12021998

PATIENT
  Age: 41 Year
  Sex: Female

DRUGS (1)
  1. REVLIMID (LENALIDOMIDE) (10 MILLIGRAM, CAPULES) [Suspect]
     Indication: PLASMA CELL MYELOMA
     Dosage: 02/24/2011 - DISCONTINUED?10 MG, DAILY, DAYS 1-14 AS DIRECTED, PO
     Route: 048
     Dates: start: 20110224

REACTIONS (3)
  - Thrombosis [None]
  - Pulmonary embolism [None]
  - Full blood count decreased [None]
